FAERS Safety Report 9128525 (Version 3)
Quarter: 2014Q1

REPORT INFORMATION
  Report Type: Report from Study
  Country: US (occurrence: US)
  Receive Date: 20130228
  Receipt Date: 20140120
  Transmission Date: 20141002
  Serious: Yes (Other)
  Sender: FDA-Public Use
  Company Number: PHEH2013US003199

PATIENT
  Age: 40 Year
  Sex: Female
  Weight: 51.25 kg

DRUGS (11)
  1. GILENYA [Suspect]
     Indication: MULTIPLE SCLEROSIS
     Dosage: 0.5 MG, QD
     Route: 048
     Dates: start: 20130204
  2. PREDNISONE [Concomitant]
     Dosage: 20 MG, UNK
     Route: 048
  3. ORTHO-NOVUM [Concomitant]
  4. SYNTHROID [Concomitant]
     Dosage: 50 UG, UNK
     Route: 048
  5. GABAPENTIN [Concomitant]
     Dosage: 100 MG, UNK
     Route: 048
  6. VIT D [Concomitant]
     Dosage: 1000 U, UNK
     Route: 048
  7. VITAMINA B 12 [Concomitant]
     Dosage: 1000 UG, UNK
     Route: 048
  8. NEURONTIN [Concomitant]
     Dosage: 300 MG, UNK
  9. CELEXA [Concomitant]
     Dosage: 10 MG, UNK
  10. ZANAFLEX [Concomitant]
     Dosage: 2 MG, UNK
  11. FOLIC ACID [Concomitant]

REACTIONS (6)
  - Central nervous system lesion [Unknown]
  - Neck pain [Not Recovered/Not Resolved]
  - Musculoskeletal pain [Not Recovered/Not Resolved]
  - Pain [Unknown]
  - Haemorrhage [Unknown]
  - Muscle spasms [Unknown]
